FAERS Safety Report 17375154 (Version 1)
Quarter: 2020Q1

REPORT INFORMATION
  Report Type: Report from Study
  Country: JP (occurrence: JP)
  Receive Date: 20200205
  Receipt Date: 20200205
  Transmission Date: 20200409
  Serious: Yes (Hospitalization)
  Sender: FDA-Public Use
  Company Number: JP-PFIZER INC-2020046118

PATIENT
  Age: 78 Year
  Sex: Female

DRUGS (4)
  1. METHOTREXATE SODIUM. [Suspect]
     Active Substance: METHOTREXATE SODIUM
     Dosage: 12 MG, WEEKLY
     Dates: start: 20171221, end: 20180603
  2. XELJANZ [Suspect]
     Active Substance: TOFACITINIB CITRATE
     Dosage: NO DOSE GIVEN
  3. METHOTREXATE SODIUM. [Suspect]
     Active Substance: METHOTREXATE SODIUM
     Dosage: 8 MG, WEEKLY
     Route: 048
     Dates: start: 20171207, end: 20171221
  4. FOLIAMINE [Concomitant]
     Dosage: 5 MG, WEEKLY
     Route: 048
     Dates: start: 20171221, end: 20180602

REACTIONS (2)
  - Subarachnoid haemorrhage [Recovered/Resolved]
  - Ruptured cerebral aneurysm [Recovered/Resolved]

NARRATIVE: CASE EVENT DATE: 20180603
